FAERS Safety Report 5459201-6 (Version None)
Quarter: 2007Q3

REPORT INFORMATION
  Report Type: 
  Country: None (occurrence: None)
  Receive Date: 20070919
  Receipt Date: 20070724
  Transmission Date: 20080115
  Serious: Yes (Other)
  Sender: FDA-Public Use
  Company Number: US-PURDUE-USA_2007_0029000

PATIENT
  Sex: Female
  Weight: 62 kg

DRUGS (1)
  1. OXYCONTIN [Suspect]
     Indication: BACK PAIN
     Dosage: 40 MG, SEE TEXT
     Dates: start: 20010113, end: 20050509

REACTIONS (7)
  - BLOOD GLUCOSE INCREASED [None]
  - BRAIN DAMAGE [None]
  - DRUG ABUSER [None]
  - DRUG DEPENDENCE [None]
  - FEELING ABNORMAL [None]
  - PAIN [None]
  - THINKING ABNORMAL [None]
